FAERS Safety Report 4957368-7 (Version None)
Quarter: 2006Q1

REPORT INFORMATION
  Report Type: 
  Country: None (occurrence: None)
  Receive Date: 20060324
  Receipt Date: 20060313
  Transmission Date: 20060701
  Serious: Yes (Other)
  Sender: FDA-Public Use
  Company Number: HQWYE320414MAR06

PATIENT
  Age: 30 Year
  Sex: Female
  Weight: 69.7 kg

DRUGS (6)
  1. RAPAMUNE [Suspect]
     Indication: PROPHYLAXIS AGAINST TRANSPLANT REJECTION
     Dosage: UNSPECIFIED; ORAL; 4MG 1X PER 1 DAY; ORAL
     Route: 048
     Dates: start: 20040813, end: 20060209
  2. RAPAMUNE [Suspect]
     Indication: PROPHYLAXIS AGAINST TRANSPLANT REJECTION
     Dosage: UNSPECIFIED; ORAL; 4MG 1X PER 1 DAY; ORAL
     Route: 048
     Dates: start: 20060210
  3. CELLCEPT [Concomitant]
  4. PREDNISONE [Concomitant]
  5. ZENAPAX [Concomitant]
  6. ZOCOR [Concomitant]

REACTIONS (6)
  - DISEASE RECURRENCE [None]
  - GLOMERULONEPHRITIS [None]
  - HAEMATURIA [None]
  - PROTEINURIA [None]
  - SYSTEMIC LUPUS ERYTHEMATOSUS [None]
  - TRANSPLANT REJECTION [None]
